FAERS Safety Report 6122017-1 (Version None)
Quarter: 2009Q1

REPORT INFORMATION
  Report Type: 
  Country: None (occurrence: None)
  Receive Date: 20090312
  Receipt Date: 20090303
  Transmission Date: 20090719
  Serious: Yes (Other)
  Sender: FDA-Public Use
  Company Number: THYM-1000930

PATIENT
  Age: 50 Year
  Sex: Female
  Weight: 81.6 kg

DRUGS (17)
  1. THYMOGLOBULIN [Suspect]
     Indication: RENAL TRANSPLANT
     Dosage: 1.5 MG/KG, INTRAVENOUS; 120 MG, QD, INTRAVENOUS
     Route: 042
     Dates: start: 20050101, end: 20050101
  2. THYMOGLOBULIN [Suspect]
     Indication: RENAL TRANSPLANT
     Dosage: 1.5 MG/KG, INTRAVENOUS; 120 MG, QD, INTRAVENOUS
     Route: 042
     Dates: start: 20090225
  3. SEPTRA [Concomitant]
  4. CLOTRIMAZOLE [Concomitant]
  5. HEPARIN SODIUM [Concomitant]
  6. CELLCEPT [Concomitant]
  7. PERCOCET [Concomitant]
  8. VALCYTE [Concomitant]
  9. CEPACOL (CETYLPYRIDINIUM CHLORIDE) [Concomitant]
  10. ZANTAC 150 [Concomitant]
  11. TYLENOL (PARACETAMOL, PSEUDOEPHEDRINE HYDROCHLORIDE) [Concomitant]
  12. PROGRAF [Concomitant]
  13. LOPRESOR HYGROTON (CHLORTALIDONE, METOPROLOL TARTRATE) [Concomitant]
  14. COLACE (DOCUSATE SODIUM) [Concomitant]
  15. ZOFRAN [Concomitant]
  16. DULCOLAX (DOCUSATE SODIUM) [Concomitant]
  17. DELTASONE [Concomitant]

REACTIONS (2)
  - KIDNEY TRANSPLANT REJECTION [None]
  - RENAL GRAFT LOSS [None]
